FAERS Safety Report 7025469-8 (Version None)
Quarter: 2010Q4

REPORT INFORMATION
  Report Type: 
  Country: None (occurrence: None)
  Receive Date: 20101001
  Receipt Date: 20100923
  Transmission Date: 20110411
  Serious: Yes (Other)
  Sender: FDA-Public Use
  Company Number: US-B.I. PHARMACEUTICALS,INC./RIDGEFIELD-2010-DE-05350GD

PATIENT
  Sex: Female

DRUGS (10)
  1. PRAMIPEXOLE [Suspect]
     Indication: RESTLESS LEGS SYNDROME
  2. PRAMIPEXOLE [Suspect]
     Indication: PERIODIC LIMB MOVEMENT DISORDER
  3. LIDOCAINE [Concomitant]
     Indication: MORTON'S NEUROMA
  4. BUPIVACAINE HCL [Concomitant]
     Indication: MORTON'S NEUROMA
  5. METHYLPREDNISOLONE [Concomitant]
     Indication: MORTON'S NEUROMA
  6. DEXAMETHASONE [Concomitant]
     Indication: MORTON'S NEUROMA
  7. OXYCODONE HCL AND ACETAMINOPHEN [Concomitant]
     Indication: DYSAESTHESIA
  8. TRAMADOL HCL [Concomitant]
     Indication: DYSAESTHESIA
  9. IRON [Concomitant]
     Indication: SERUM FERRITIN DECREASED
     Route: 048
  10. ANTI-HIV AGENTS [Concomitant]
     Indication: HIV INFECTION

REACTIONS (1)
  - CONDITION AGGRAVATED [None]
